FAERS Safety Report 13774822 (Version 3)
Quarter: 2018Q3

REPORT INFORMATION
  Report Type: Report from Study
  Country: AU (occurrence: AU)
  Receive Date: 20170720
  Receipt Date: 20180716
  Transmission Date: 20181010
  Serious: Yes (Hospitalization)
  Sender: FDA-Public Use
  Company Number: PHHY2017AU062824

PATIENT
  Age: 35 Year
  Sex: Male
  Weight: 95 kg

DRUGS (12)
  1. CLOZARIL [Suspect]
     Active Substance: CLOZAPINE
     Dosage: UNK
     Route: 048
     Dates: start: 20170426
  2. VALPROATE SODIUM. [Suspect]
     Active Substance: VALPROATE SODIUM
     Indication: PRODUCT USED FOR UNKNOWN INDICATION
     Dosage: 1000 MG, BID
     Route: 048
     Dates: end: 20170917
  3. VENLAFAXINE [Suspect]
     Active Substance: VENLAFAXINE HYDROCHLORIDE
     Indication: DEPRESSION
     Dosage: 75 MG, (LONGTERM)
     Route: 048
     Dates: end: 20170917
  4. VENLAFAXINE [Suspect]
     Active Substance: VENLAFAXINE HYDROCHLORIDE
     Indication: SCHIZOPHRENIA
  5. CLOZARIL [Suspect]
     Active Substance: CLOZAPINE
     Dosage: 3.5 G, UNK
     Route: 048
     Dates: start: 201704, end: 201704
  6. CLOZARIL [Suspect]
     Active Substance: CLOZAPINE
     Dosage: 300 MG, QN
     Route: 048
     Dates: start: 20140708
  7. CLOZARIL [Suspect]
     Active Substance: CLOZAPINE
     Indication: SCHIZOPHRENIA
     Dosage: 200 MG, UNK
     Route: 048
     Dates: start: 20051213
  8. CLOZARIL [Suspect]
     Active Substance: CLOZAPINE
     Dosage: 450 MG, UNK
     Route: 048
     Dates: start: 2017, end: 20170917
  9. CLOZARIL [Suspect]
     Active Substance: CLOZAPINE
     Dosage: 350 MG, UNK
     Route: 048
     Dates: start: 20180111
  10. GLICLAZIDE [Suspect]
     Active Substance: GLICLAZIDE
     Indication: PRODUCT USED FOR UNKNOWN INDICATION
     Route: 065
  11. CLOZARIL [Suspect]
     Active Substance: CLOZAPINE
     Dosage: UNK
     Route: 048
     Dates: start: 20170614
  12. AMISULPRIDE [Suspect]
     Active Substance: AMISULPRIDE
     Indication: SCHIZOPHRENIA
     Dosage: 200 MG, BID
     Route: 048
     Dates: start: 20170523, end: 20170917

REACTIONS (5)
  - Antipsychotic drug level below therapeutic [Unknown]
  - Overdose [Unknown]
  - Suicidal ideation [Recovering/Resolving]
  - Schizophrenia [Recovering/Resolving]
  - Antipsychotic drug level above therapeutic [Not Recovered/Not Resolved]

NARRATIVE: CASE EVENT DATE: 201704
